FAERS Safety Report 18195424 (Version 4)
Quarter: 2020Q4

REPORT INFORMATION
  Report Type: Report from Study
  Country: PL (occurrence: PL)
  Receive Date: 20200825
  Receipt Date: 20201027
  Transmission Date: 20210113
  Serious: Yes (Hospitalization, Other)
  Sender: FDA-Public Use
  Company Number: NVSC2020PL230072

PATIENT
  Age: 60 Year
  Sex: Female
  Weight: 91 kg

DRUGS (5)
  1. LEE011 [Suspect]
     Active Substance: RIBOCICLIB
     Indication: BREAST CANCER
     Dosage: 2X200 UNK
     Route: 048
     Dates: start: 20200310
  2. COMPARATOR ANASTROZOLE [Suspect]
     Active Substance: ANASTROZOLE
     Indication: HER2 NEGATIVE BREAST CANCER
     Dosage: 2.5 UNK
     Route: 048
     Dates: start: 20200310
  3. EUTHYROX [Concomitant]
     Active Substance: LEVOTHYROXINE SODIUM
     Indication: HYPOTHYROIDISM
     Dosage: 37.5 MG
     Route: 065
     Dates: start: 2015
  4. HEPA-MERZ [Concomitant]
     Indication: PROPHYLAXIS
     Dosage: 3X1 TAB
     Route: 065
     Dates: start: 20200630
  5. TELMISARTAN. [Concomitant]
     Active Substance: TELMISARTAN
     Indication: HYPERTENSION
     Dosage: 40 MG
     Route: 065
     Dates: start: 2015

REACTIONS (1)
  - Liver injury [Not Recovered/Not Resolved]

NARRATIVE: CASE EVENT DATE: 20200818
